FAERS Safety Report 15752329 (Version 1)
Quarter: 2018Q4

REPORT INFORMATION
  Report Type: Spontaneous
  Country: SE (occurrence: SE)
  Receive Date: 20181221
  Receipt Date: 20181221
  Transmission Date: 20190205
  Serious: Yes (Other)
  Sender: FDA-Public Use
  Company Number: SE-NAPPMUNDI-GBR-2018-0062410

PATIENT
  Age: 38 Year
  Sex: Female

DRUGS (4)
  1. SALAZOPYRIN [Suspect]
     Active Substance: SULFASALAZINE
     Indication: PRODUCT USED FOR UNKNOWN INDICATION
     Dosage: DOSAGE FORM: UNSPECIFIED
     Route: 065
     Dates: end: 2018
  2. REMICADE [Suspect]
     Active Substance: INFLIXIMAB
     Indication: ANKYLOSING SPONDYLITIS
     Dosage: DOSAGE FORM: LYOPHILIZED POWDER, INITIATED 3 TO 4 YEARS AGO
     Route: 042
     Dates: end: 20180829
  3. PREGABALIN. [Suspect]
     Active Substance: PREGABALIN
     Indication: PULMONARY PAIN
     Dosage: DOSAGE FORM: UNSPECIFIED
     Route: 065
  4. MORPHINE SULFATE. [Suspect]
     Active Substance: MORPHINE SULFATE
     Indication: PULMONARY PAIN
     Dosage: DOSAGE FORM: UNSPECIFIED
     Route: 065
     Dates: start: 2018

REACTIONS (6)
  - Asthma [Not Recovered/Not Resolved]
  - Asthenia [Not Recovered/Not Resolved]
  - Pleurisy [Unknown]
  - Liver function test increased [Unknown]
  - Pulmonary pain [Not Recovered/Not Resolved]
  - Dyspnoea [Not Recovered/Not Resolved]

NARRATIVE: CASE EVENT DATE: 2018
